FAERS Safety Report 8092673-X (Version None)
Quarter: 2012Q1

REPORT INFORMATION
  Report Type: 
  Country: None (occurrence: None)
  Receive Date: 20120130
  Receipt Date: 20120130
  Transmission Date: 20120608
  Serious: Yes (Hospitalization)
  Sender: FDA-Public Use
  Company Number: None

PATIENT
  Age: 64 Year
  Sex: Male
  Weight: 82.8 kg

DRUGS (2)
  1. OXCARBAZEPINE [Suspect]
     Indication: CONVULSION
     Dosage: 600 MG BID PO
     Route: 048
     Dates: start: 20111108
  2. LEVETIRACETAM [Suspect]
     Indication: CONVULSION
     Dosage: 750 MG BID PO
     Route: 048
     Dates: start: 20110302

REACTIONS (12)
  - CONVULSION [None]
  - CONFUSIONAL STATE [None]
  - AGITATION [None]
  - SOMNOLENCE [None]
  - POSTICTAL STATE [None]
  - HEART RATE INCREASED [None]
  - OXYGEN SATURATION DECREASED [None]
  - UNRESPONSIVE TO STIMULI [None]
  - DIALYSIS [None]
  - TREATMENT NONCOMPLIANCE [None]
  - CARDIO-RESPIRATORY ARREST [None]
  - BLOOD PRESSURE INCREASED [None]
